FAERS Safety Report 7618345-0 (Version None)
Quarter: 2011Q3

REPORT INFORMATION
  Report Type: 
  Country: None (occurrence: None)
  Receive Date: 20110718
  Receipt Date: 20110706
  Transmission Date: 20111222
  Serious: Yes (Other)
  Sender: FDA-Public Use
  Company Number: PHHY2011BR59998

PATIENT
  Age: 58 Year
  Sex: Female

DRUGS (1)
  1. DICLOFENAC SODIUM [Suspect]
     Indication: EXOSTOSIS
     Dosage: 50 MG,  HALF TABLET AND LATER MORE HALF TABLET 1 MONTH AGO
     Route: 048

REACTIONS (3)
  - PHARYNGEAL OEDEMA [None]
  - HEART RATE INCREASED [None]
  - MALAISE [None]
